FAERS Safety Report 9027173 (Version 1)
Quarter: 2013Q1

REPORT INFORMATION
  Report Type: Spontaneous
  Country: IE (occurrence: IE)
  Receive Date: 20130123
  Receipt Date: 20130123
  Transmission Date: 20140127
  Serious: Yes (Other)
  Sender: FDA-Public Use
  Company Number: IE-GLAXOSMITHKLINE-B0860962A

PATIENT
  Age: 41 Year
  Sex: Male

DRUGS (4)
  1. LAMOTRIGINE [Suspect]
     Indication: PRODUCT USED FOR UNKNOWN INDICATION
     Dosage: 200MG PER DAY
     Route: 065
     Dates: start: 200710
  2. OXCARBAZEPINE [Concomitant]
     Dosage: 1200MG PER DAY
     Dates: start: 201010
  3. VALPROATE [Concomitant]
     Dosage: 2000MG PER DAY
     Dates: start: 200606
  4. CLOBAZAM [Concomitant]
     Dosage: 10MG PER DAY
     Dates: start: 200606

REACTIONS (6)
  - Urosepsis [Unknown]
  - Pneumonia aspiration [Unknown]
  - Kidney infection [Unknown]
  - Lower respiratory tract infection [Unknown]
  - Convulsion [Unknown]
  - Abnormal behaviour [Unknown]
